FAERS Safety Report 6093741-4 (Version None)
Quarter: 2009Q1

REPORT INFORMATION
  Report Type: 
  Country: None (occurrence: None)
  Receive Date: 20090223
  Receipt Date: 20090223
  Transmission Date: 20090719
  Serious: Yes (Other)
  Sender: FDA-Public Use
  Company Number: None

PATIENT
  Age: 21 Year
  Sex: Female
  Weight: 56.6996 kg

DRUGS (2)
  1. PREDNISONE [Suspect]
     Indication: BRONCHITIS
     Dosage: 3 TIMES DAILY
     Dates: start: 20050305, end: 20050803
  2. PREDNISONE [Suspect]
     Indication: PERIODONTAL INFECTION
     Dosage: 3 TIMES DAILY
     Dates: start: 20050305, end: 20050803

REACTIONS (7)
  - BONE PAIN [None]
  - BRONCHITIS [None]
  - GAIT DISTURBANCE [None]
  - GINGIVAL INFECTION [None]
  - OSTEONECROSIS [None]
  - PAIN [None]
  - PAIN IN EXTREMITY [None]
